FAERS Safety Report 9460076 (Version 1)
Quarter: 2013Q3

REPORT INFORMATION
  Report Type: Spontaneous
  Country: US (occurrence: None)
  Receive Date: 20130814
  Receipt Date: 20130814
  Transmission Date: 20140515
  Serious: Yes (Other)
  Sender: FDA-Public Use
  Company Number: None

PATIENT
  Age: 12 Year
  Sex: Female

DRUGS (1)
  1. COOL MINT LISTERINE POCKETMIST [Suspect]
     Indication: PRODUCT USED FOR UNKNOWN INDICATION
     Dosage: 3 STRIPS
     Route: 048
     Dates: start: 20130716, end: 20130716

REACTIONS (4)
  - Expired drug administered [None]
  - Chest discomfort [None]
  - Extra dose administered [None]
  - Product physical issue [None]
